FAERS Safety Report 7394572-5 (Version None)
Quarter: 2011Q2

REPORT INFORMATION
  Report Type: 
  Country: None (occurrence: None)
  Receive Date: 20110405
  Receipt Date: 20110324
  Transmission Date: 20111010
  Serious: No
  Sender: FDA-Public Use
  Company Number: US-JNJFOC-20110310409

PATIENT
  Sex: Female

DRUGS (2)
  1. MULTI-VITAMINS [Suspect]
     Indication: MEDICAL DIET
     Route: 048
  2. INVEGA SUSTENNA [Suspect]
     Indication: ILL-DEFINED DISORDER
     Route: 030

REACTIONS (1)
  - URTICARIA [None]
